FAERS Safety Report 6855573-6 (Version None)
Quarter: 2010Q3

REPORT INFORMATION
  Report Type: 
  Country: None (occurrence: None)
  Receive Date: 20100719
  Receipt Date: 20100706
  Transmission Date: 20110219
  Serious: Yes (Hospitalization)
  Sender: FDA-Public Use
  Company Number: CA-JNJFOC-20100702576

PATIENT
  Sex: Female
  Weight: 64 kg

DRUGS (3)
  1. REMICADE [Suspect]
     Indication: CROHN'S DISEASE
     Dosage: 40TH INFUSION
     Route: 042
  2. REMICADE [Suspect]
     Dosage: 38 INFUSIONS ON UNREPORTED DATES
     Route: 042
  3. REMICADE [Suspect]
     Dosage: 39TH INFUSION
     Route: 042

REACTIONS (6)
  - COLOSTOMY [None]
  - POSTOPERATIVE WOUND COMPLICATION [None]
  - PURULENT DISCHARGE [None]
  - PYODERMA GANGRENOSUM [None]
  - SUTURE RELATED COMPLICATION [None]
  - WOUND DRAINAGE [None]
